FAERS Safety Report 6540588-8 (Version None)
Quarter: 2010Q1

REPORT INFORMATION
  Report Type: 
  Country: None (occurrence: None)
  Receive Date: 20100118
  Receipt Date: 20100112
  Transmission Date: 20100710
  Serious: Yes (Hospitalization)
  Sender: FDA-Public Use
  Company Number: FR-ALLERGAN-1000445US

PATIENT
  Age: 19 Year
  Sex: Female

DRUGS (2)
  1. BOTOX [Suspect]
     Indication: HYPERHIDROSIS
     Dosage: UNK
     Route: 023
     Dates: start: 20100111, end: 20100111
  2. BOTOX [Suspect]
     Dosage: 100 UNITS, SINGLE
     Route: 023
     Dates: start: 20090401, end: 20090401

REACTIONS (3)
  - ASTHENIA [None]
  - HEADACHE [None]
  - NERVOUS SYSTEM DISORDER [None]
